FAERS Safety Report 25551683 (Version 1)
Quarter: 2025Q3

REPORT INFORMATION
  Report Type: Report from Study
  Country: US (occurrence: US)
  Receive Date: 20250714
  Receipt Date: 20250714
  Transmission Date: 20251021
  Serious: Yes (Other)
  Sender: ALEXION PHARMACEUTICALS
  Company Number: US-AstraZeneca-CH-00905313A

PATIENT
  Age: 79 Year
  Sex: Female

DRUGS (14)
  1. DAPAGLIFLOZIN [Suspect]
     Active Substance: DAPAGLIFLOZIN
     Route: 065
  2. METOPROLOL TARTRATE [Suspect]
     Active Substance: METOPROLOL TARTRATE
     Route: 065
  3. CIPROFLOXACIN HYDROCHLORIDE [Concomitant]
     Active Substance: CIPROFLOXACIN HYDROCHLORIDE
  4. ATORVASTATIN CALCIUM [Concomitant]
     Active Substance: ATORVASTATIN CALCIUM
  5. ALLOPURINOL [Concomitant]
     Active Substance: ALLOPURINOL
  6. CLOPIDOGREL BISULFATE [Concomitant]
     Active Substance: CLOPIDOGREL BISULFATE
  7. HYDROCODONE [Concomitant]
     Active Substance: HYDROCODONE
  8. TRULICITY [Concomitant]
     Active Substance: DULAGLUTIDE
  9. INSULIN NOS [Concomitant]
     Active Substance: INSULIN NOS
  10. LYRICA [Concomitant]
     Active Substance: PREGABALIN
  11. VITAMIN D3 [Concomitant]
     Active Substance: CHOLECALCIFEROL
  12. VITAMIN B12 [Concomitant]
     Active Substance: CYANOCOBALAMIN
  13. ASPIRIN [Concomitant]
     Active Substance: ASPIRIN
  14. TRAMADOL [Concomitant]
     Active Substance: TRAMADOL

REACTIONS (6)
  - Type 2 diabetes mellitus [Unknown]
  - Lumbar radiculopathy [Unknown]
  - Lumbar spinal stenosis [Unknown]
  - Muscular weakness [Unknown]
  - Vitamin D deficiency [Unknown]
  - Product use issue [Unknown]

NARRATIVE: CASE EVENT DATE: 20250430
